FAERS Safety Report 7988224-8 (Version None)
Quarter: 2011Q4

REPORT INFORMATION
  Report Type: 
  Country: None (occurrence: None)
  Receive Date: 20111216
  Receipt Date: 20110608
  Transmission Date: 20120403
  Serious: No
  Sender: FDA-Public Use
  Company Number: US-BRISTOL-MYERS SQUIBB COMPANY-15814676

PATIENT
  Age: 60 Year
  Sex: Male

DRUGS (2)
  1. BENADRYL [Concomitant]
  2. ABILIFY [Suspect]

REACTIONS (4)
  - FATIGUE [None]
  - PRESYNCOPE [None]
  - HYPOTENSION [None]
  - URINE OUTPUT DECREASED [None]
